FAERS Safety Report 4878866-0 (Version None)
Quarter: 2005Q4

REPORT INFORMATION
  Report Type: 
  Country: None (occurrence: None)
  Receive Date: 20051209
  Receipt Date: 20050524
  Transmission Date: 20060501
  Serious: Yes (Other)
  Sender: FDA-Public Use
  Company Number: USA-2005-0020407

PATIENT
  Age: 49 Year
  Sex: Male

DRUGS (4)
  1. OXYCODONE HCL [Suspect]
  2. VALIUM [Suspect]
  3. DARVOCET-N 100 [Suspect]
  4. ALCOHOL (ETHANOL) [Suspect]

REACTIONS (2)
  - IMPAIRED DRIVING ABILITY [None]
  - POLYSUBSTANCE ABUSE [None]
